FAERS Safety Report 4426529-8 (Version None)
Quarter: 2004Q3

REPORT INFORMATION
  Report Type: 
  Country: None (occurrence: None)
  Receive Date: 20040816
  Receipt Date: 20020722
  Transmission Date: 20050211
  Serious: Yes (Hospitalization)
  Sender: FDA-Public Use
  Company Number: PHHO2002AT05571

PATIENT
  Age: 45 Year
  Sex: Female
  Weight: 53 kg

DRUGS (8)
  1. TEGASEROD VS PLACEBO [Suspect]
     Indication: CONSTIPATION
     Dosage: 6 MG, BID
     Route: 048
     Dates: start: 20020305, end: 20020711
  2. TEGASEROD VS PLACEBO [Suspect]
     Dosage: OFF STUDY MEDICATION
     Dates: start: 20020712, end: 20020717
  3. TEGASEROD VS PLACEBO [Suspect]
     Route: 048
     Dates: start: 20020718
  4. EUTHYROX [Concomitant]
     Indication: GOITRE
  5. PANTOLOC [Concomitant]
  6. KALIORAL [Concomitant]
  7. CIPROXIN [Concomitant]
  8. FRAGMIN [Concomitant]

REACTIONS (5)
  - DEHYDRATION [None]
  - DIARRHOEA [None]
  - GASTROENTERITIS [None]
  - HYPOKALAEMIA [None]
  - VOMITING [None]
